FAERS Safety Report 14257243 (Version 2)
Quarter: 2018Q1

REPORT INFORMATION
  Report Type: Spontaneous
  Country: CN (occurrence: CN)
  Receive Date: 20171206
  Receipt Date: 20180108
  Transmission Date: 20180508
  Serious: Yes (Hospitalization)
  Sender: FDA-Public Use
  Company Number: PHHY2017CN177044

PATIENT
  Age: 60 Year
  Sex: Female
  Weight: 69 kg

DRUGS (1)
  1. ACLASTA [Suspect]
     Active Substance: ZOLEDRONIC ACID
     Indication: BONE LOSS
     Dosage: 5 MG, ONCE/SINGLE (5 MG/100 ML)
     Route: 041
     Dates: start: 20171128

REACTIONS (2)
  - Haematuria [Not Recovered/Not Resolved]
  - Occult blood [Unknown]

NARRATIVE: CASE EVENT DATE: 20171128
